FAERS Safety Report 15109810 (Version 2)
Quarter: 2018Q3

REPORT INFORMATION
  Report Type: Spontaneous
  Country: US (occurrence: US)
  Receive Date: 20180705
  Receipt Date: 20180710
  Transmission Date: 20181010
  Serious: No
  Sender: FDA-Public Use
  Company Number: US-PFIZER INC-2018270800

PATIENT
  Age: 58 Year
  Sex: Female

DRUGS (5)
  1. COSENTYX [Suspect]
     Active Substance: SECUKINUMAB
     Dosage: UNK, AT A MINIMUM OF 3 MONTHS
  2. ENBREL [Suspect]
     Active Substance: ETANERCEPT
     Dosage: UNK, AT A MINIMUM OF 3 MONTHS
  3. METHOTREXATE SODIUM. [Suspect]
     Active Substance: METHOTREXATE SODIUM
     Dosage: UNK, AT A MINIMUM OF 3 MONTHS
  4. HUMIRA [Suspect]
     Active Substance: ADALIMUMAB
     Dosage: UNK, AT A MINIMUM OF 3 MONTHS
  5. ARAVA [Suspect]
     Active Substance: LEFLUNOMIDE
     Dosage: UNK, AT A MINIMUM OF 3 MONTHS

REACTIONS (1)
  - Drug ineffective [Unknown]
